FAERS Safety Report 8438069-X (Version None)
Quarter: 2012Q2

REPORT INFORMATION
  Report Type: 
  Country: None (occurrence: None)
  Receive Date: 20120614
  Receipt Date: 20120604
  Transmission Date: 20120825
  Serious: Yes (Other)
  Sender: FDA-Public Use
  Company Number: JP-JNJFOC-20120604581

PATIENT
  Sex: Male
  Weight: 64 kg

DRUGS (8)
  1. ISONIAZID [Suspect]
     Indication: PROPHYLAXIS
     Dates: start: 20110523, end: 20111219
  2. STELARA [Suspect]
     Indication: PSORIASIS
     Route: 058
     Dates: start: 20111219
  3. CYCLOSPORINE [Concomitant]
     Dates: start: 20050215, end: 20110610
  4. STELARA [Suspect]
     Route: 058
     Dates: start: 20110711
  5. STELARA [Suspect]
     Route: 058
     Dates: start: 20110613
  6. STELARA [Suspect]
     Route: 058
     Dates: start: 20110926
  7. CLOBETASOL PROPIONATE [Concomitant]
     Route: 061
     Dates: end: 20111219
  8. MAXACALCITOL [Concomitant]
     Route: 061
     Dates: end: 20111219

REACTIONS (3)
  - ASPARTATE AMINOTRANSFERASE INCREASED [None]
  - GAMMA-GLUTAMYLTRANSFERASE INCREASED [None]
  - ALANINE AMINOTRANSFERASE INCREASED [None]
